FAERS Safety Report 8816055 (Version 2)
Quarter: 2012Q4

REPORT INFORMATION
  Report Type: 
  Country: IT (occurrence: IT)
  Receive Date: 20120928
  Receipt Date: 20121018
  Transmission Date: 20130627
  Serious: Yes (Hospitalization)
  Sender: FDA-Public Use
  Company Number: IT-INCYTE CORPORATION-2012IN001845

PATIENT
  Age: 70 Year
  Sex: Male
  Weight: 110 kg

DRUGS (7)
  1. INC424 [Suspect]
     Indication: MYELOFIBROSIS
     Dosage: 25 mg, bid
     Route: 048
     Dates: start: 20120329, end: 20120916
  2. INC424 [Suspect]
     Dosage: UNK
     Route: 048
     Dates: start: 20120917
  3. INC424 [Suspect]
     Dosage: UNK
     Route: 048
     Dates: start: 20121003
  4. LASIX [Concomitant]
     Dosage: UNK
     Dates: start: 20120816
  5. ZOFENOPRIL [Concomitant]
  6. DICLOFENAC [Concomitant]
  7. CARDIOASPIRINA [Concomitant]

REACTIONS (2)
  - Ascites [Recovered/Resolved]
  - Cardiac disorder [Unknown]
